FAERS Safety Report 16138087 (Version 1)
Quarter: 2019Q1

REPORT INFORMATION
  Report Type: Spontaneous
  Country: CN (occurrence: CN)
  Receive Date: 20190330
  Receipt Date: 20190330
  Transmission Date: 20190418
  Serious: Yes (Hospitalization)
  Sender: FDA-Public Use
  Company Number: CN-UNITED THERAPEUTICS-UNT-2019-005391

PATIENT
  Sex: Female

DRUGS (1)
  1. REMODULIN [Suspect]
     Active Substance: TREPROSTINIL
     Indication: PULMONARY ARTERIAL HYPERTENSION
     Dosage: 0.00125 ?G/KG, CONTINUING
     Route: 058

REACTIONS (6)
  - Infusion site pain [Recovered/Resolved]
  - Infusion site extravasation [Unknown]
  - Heart rate increased [Recovering/Resolving]
  - Infusion site erythema [Recovered/Resolved]
  - Connective tissue disorder [Unknown]
  - Systemic lupus erythematosus [Unknown]
